FAERS Safety Report 5968954-X (Version None)
Quarter: 2008Q4

REPORT INFORMATION
  Report Type: 
  Country: None (occurrence: None)
  Receive Date: 20081126
  Receipt Date: 20081118
  Transmission Date: 20090506
  Serious: Yes (Death)
  Sender: FDA-Public Use
  Company Number: HK-ROCHE-583908

PATIENT
  Sex: Male
  Weight: 46.2 kg

DRUGS (26)
  1. CAPECITABINE [Suspect]
     Indication: GASTRIC CANCER
     Dosage: FREQUENCY: D1-14Q3W. BATCH NUMBER:1 X 150 MG FROM 79749, 1 X 500 MG FROM 86208
     Route: 048
     Dates: start: 20080627
  2. CAPECITABINE [Suspect]
     Route: 048
     Dates: start: 20080726
  3. CAPECITABINE [Suspect]
     Route: 048
     Dates: start: 20080804
  4. CAPECITABINE [Suspect]
     Dosage: DOSE ALSO REPORTED AS 2000 MG/M2. FREQUENCY: D1-14Q3W. ROUTE:BID PO
     Route: 048
     Dates: start: 20080815, end: 20080904
  5. BLINDED BEVACIZUMAB [Suspect]
     Indication: GASTRIC CANCER
     Dosage: BATCH NUMBER REPORTED AS 121596 X 1 VIAL, 121597 X 4 VIALS, FORM: INFUSION.
     Route: 042
     Dates: start: 20080626
  6. BLINDED BEVACIZUMAB [Suspect]
     Dosage: FREQUENCY: D1Q3W. BATCH NUMBER REPORTED AS 121599 X 2 VIAL, 121597 X 2 VIALS
     Route: 042
     Dates: start: 20080815, end: 20080904
  7. CISPLATIN [Suspect]
     Indication: GASTRIC CANCER
     Dosage: FORM: INFUSION. FREQUENCY: D1Q3W.
     Route: 042
     Dates: start: 20080627
  8. CISPLATIN [Suspect]
     Dosage: FREQUENCY:D1Q3W
     Route: 042
     Dates: start: 20080815, end: 20080904
  9. MULTI-VITS [Concomitant]
     Dates: start: 20080829, end: 20080904
  10. MULTI-VITS [Concomitant]
     Dates: start: 20080818
  11. MULTI-VITS [Concomitant]
     Dates: start: 20080726
  12. MULTI-VITS [Concomitant]
     Dates: start: 20080513
  13. MAXOLON [Concomitant]
     Dates: start: 20080726
  14. NEXIUM [Concomitant]
     Dates: start: 20080726
  15. METOPROLOL TARTRATE [Concomitant]
     Dates: start: 20080726
  16. PERINDOPRIL [Concomitant]
     Dates: start: 20080726
  17. SIMVASTIN [Concomitant]
     Dates: start: 20080726
  18. POTASSIUM CHLORIDE [Concomitant]
     Dates: start: 20080828, end: 20080828
  19. POTASSIUM CHLORIDE [Concomitant]
     Dates: start: 20080829, end: 20080830
  20. POTASSIUM CHLORIDE [Concomitant]
     Dates: start: 20080901, end: 20080901
  21. POTASSIUM CHLORIDE [Concomitant]
     Dates: start: 20080902, end: 20080903
  22. LARGACTIL [Concomitant]
     Dates: start: 20080815, end: 20080815
  23. LARGACTIL [Concomitant]
     Dates: start: 20080816, end: 20080816
  24. LARGACTIL [Concomitant]
     Dates: start: 20080817, end: 20080818
  25. LARGACTIL [Concomitant]
     Dates: start: 20080820, end: 20080820
  26. LARGACTIL [Concomitant]
     Dates: start: 20080821, end: 20080827

REACTIONS (1)
  - FEBRILE NEUTROPENIA [None]
